FAERS Safety Report 5583774-6 (Version None)
Quarter: 2008Q1

REPORT INFORMATION
  Report Type: 
  Country: None (occurrence: None)
  Receive Date: 20080108
  Receipt Date: 20080102
  Transmission Date: 20080703
  Serious: Yes (Life-Threatening, Hospitalization, Other)
  Sender: FDA-Public Use
  Company Number: US-JNJFOC-20071101639

PATIENT
  Sex: Female

DRUGS (5)
  1. REMICADE [Suspect]
     Indication: PSORIASIS
     Dosage: 3 DOSES (IV)
     Route: 042
  2. TRAZODONE HCL [Concomitant]
     Dosage: LONG TERM
  3. CYMBALTA [Concomitant]
  4. LIPITOR [Concomitant]
  5. TOPROL-XL [Concomitant]

REACTIONS (2)
  - CHRONIC MYELOID LEUKAEMIA [None]
  - PNEUMONIA [None]
